FAERS Safety Report 7381872-8 (Version None)
Quarter: 2011Q1

REPORT INFORMATION
  Report Type: 
  Country: None (occurrence: None)
  Receive Date: 20110329
  Receipt Date: 20110324
  Transmission Date: 20110831
  Serious: Yes (Death, Other)
  Sender: FDA-Public Use
  Company Number: PHHY2011US24531

PATIENT
  Age: 58 Year
  Sex: Male

DRUGS (4)
  1. BUMEX [Concomitant]
  2. ALDACTONE [Concomitant]
  3. CARVEDILOL [Concomitant]
  4. HYDRALAZINE HCL [Suspect]
     Indication: HYPERTENSION
     Dosage: 50 MG, TID

REACTIONS (8)
  - PULMONARY ALVEOLAR HAEMORRHAGE [None]
  - ANTI-NEUTROPHIL CYTOPLASMIC ANTIBODY POSITIVE VASCULITIS [None]
  - RESPIRATORY DISTRESS [None]
  - CREPITATIONS [None]
  - HAEMODYNAMIC INSTABILITY [None]
  - PULMONARY RENAL SYNDROME [None]
  - BLOOD CREATININE INCREASED [None]
  - LUNG INFILTRATION [None]
